FAERS Safety Report 24705482 (Version 1)
Quarter: 2024Q4

REPORT INFORMATION
  Report Type: Spontaneous
  Country: FR (occurrence: FR)
  Receive Date: 20241206
  Receipt Date: 20241206
  Transmission Date: 20250115
  Serious: Yes (Death, Other)
  Sender: RANBAXY
  Company Number: None

PATIENT
  Age: 34 Year
  Sex: Female

DRUGS (4)
  1. CYCLOSPORINE [Suspect]
     Active Substance: CYCLOSPORINE
     Indication: Immunosuppression
     Dosage: UNK
     Route: 065
  2. DEFIBROTIDE [Suspect]
     Active Substance: DEFIBROTIDE (BOVINE)
     Indication: Prophylaxis
     Dosage: 25 MG/KG PER DAY DIVIDED IN FOUR DAILY DOSES OF 6.25 MG/KG IN 5 % DEXTROSE OVER 2 H
     Route: 040
  3. URSODIOL [Suspect]
     Active Substance: URSODIOL
     Indication: Prophylaxis
     Dosage: UNKNOWN
     Route: 065
  4. HEPARIN [Concomitant]
     Active Substance: HEPARIN SODIUM
     Indication: Deep vein thrombosis
     Dosage: 100 UI/KG PER DAY
     Route: 040

REACTIONS (3)
  - Venoocclusive liver disease [Fatal]
  - Deep vein thrombosis [Unknown]
  - Product use in unapproved indication [Unknown]
